FAERS Safety Report 8893778 (Version 1)
Quarter: 2012Q4

REPORT INFORMATION
  Report Type: 
  Country: US (occurrence: US)
  Receive Date: 20121108
  Receipt Date: 20121108
  Transmission Date: 20130627
  Serious: No
  Sender: FDA-Public Use
  Company Number: US-PFIZER INC-2012276528

PATIENT
  Age: 94 Year

DRUGS (9)
  1. NORVASC [Suspect]
     Dosage: 10 mg, 1x/day
     Route: 048
  2. CIPRO [Concomitant]
     Dosage: 250 mg, UNK
     Route: 048
  3. SYNTHROID [Concomitant]
     Dosage: 25 ug, UNK
     Route: 048
  4. LEVOTHROID [Concomitant]
     Dosage: 25 ug, UNK
     Route: 048
  5. DIOVAN [Concomitant]
     Dosage: 160 mg, UNK
     Route: 048
  6. PEPCID [Concomitant]
     Dosage: 20 mg, UNK
     Route: 048
  7. VALIUM [Concomitant]
     Dosage: 2 mg, UNK
     Route: 048
  8. MULTIPLE VITAMINS [Concomitant]
     Dosage: UNK
     Route: 048
  9. OMEGA-3 FATTY ACIDS [Concomitant]
     Dosage: 1200 mg, UNK
     Route: 048

REACTIONS (2)
  - Drug hypersensitivity [Unknown]
  - Abdominal discomfort [Unknown]
